FAERS Safety Report 8997224 (Version 1)
Quarter: 2013Q1

REPORT INFORMATION
  Report Type: Report from Study
  Country: US (occurrence: US)
  Receive Date: 20130104
  Receipt Date: 20130104
  Transmission Date: 20140127
  Serious: Yes (Hospitalization)
  Sender: FDA-Public Use
  Company Number: US-TEVA-378316USA

PATIENT
  Age: 1 Year
  Sex: Male
  Weight: 8.7 kg

DRUGS (9)
  1. LESTAURTINIB [Suspect]
     Dates: start: 20111008
  2. CYCLOPHOSPHAMIDE [Suspect]
     Dates: start: 20111008
  3. CYTARABINE [Suspect]
     Dates: start: 20111008
  4. DEXAMETHASONE [Suspect]
     Dates: start: 20111008
  5. ETOPOSIDE [Suspect]
     Dates: start: 20111008
  6. MERCAPTOPURINE [Suspect]
     Dates: start: 20111008
  7. METHOTREXATE [Suspect]
     Dates: start: 20111008
  8. PEGASPARGASE [Suspect]
     Dates: start: 20111008
  9. VINCRISTINE [Suspect]
     Dates: start: 20111008

REACTIONS (1)
  - Escherichia bacteraemia [Recovered/Resolved]
